FAERS Safety Report 5011227-2 (Version None)
Quarter: 2006Q2

REPORT INFORMATION
  Report Type: 
  Country: None (occurrence: None)
  Receive Date: 20060523
  Receipt Date: 20060523
  Transmission Date: 20061013
  Serious: No
  Sender: FDA-Public Use
  Company Number: None

PATIENT
  Age: 82 Year
  Sex: Male
  Weight: 29.4838 kg

DRUGS (1)
  1. HEPARIN [Suspect]
     Indication: ARTERIAL THROMBOSIS LIMB
     Dosage: IVD
     Dates: start: 20060312, end: 20060312

REACTIONS (3)
  - ACTIVATED PARTIAL THROMBOPLASTIN TIME PROLONGED [None]
  - CATHETER SITE HAEMORRHAGE [None]
  - POST PROCEDURAL HAEMORRHAGE [None]
